FAERS Safety Report 11369692 (Version 1)
Quarter: 2015Q3

REPORT INFORMATION
  Report Type: Spontaneous
  Country: HR (occurrence: HR)
  Receive Date: 20150812
  Receipt Date: 20150812
  Transmission Date: 20151125
  Serious: Yes (Other)
  Sender: FDA-Public Use
  Company Number: HR-ACTAVIS-2015-16826

PATIENT
  Age: 43 Year
  Sex: Female

DRUGS (1)
  1. SINOXAL [Suspect]
     Active Substance: OXALIPLATIN
     Indication: COLORECTAL CANCER METASTATIC
     Dosage: 190 MG, DAILY
     Route: 041
     Dates: start: 20150727, end: 20150727

REACTIONS (3)
  - Laryngeal oedema [Recovered/Resolved]
  - Hypertension [Recovered/Resolved]
  - Tachycardia [Recovered/Resolved]

NARRATIVE: CASE EVENT DATE: 20150727
